FAERS Safety Report 24287637 (Version 1)
Quarter: 2024Q3

REPORT INFORMATION
  Report Type: Spontaneous
  Country: PL (occurrence: PL)
  Receive Date: 20240905
  Receipt Date: 20240905
  Transmission Date: 20241017
  Serious: Yes (Hospitalization, Other)
  Sender: ABBVIE
  Company Number: PL-ABBVIE-5902116

PATIENT
  Age: 68 Year
  Sex: Male

DRUGS (2)
  1. VENETOCLAX [Suspect]
     Active Substance: VENETOCLAX
     Indication: Acute myeloid leukaemia
     Dosage: 400 MILLIGRAM
     Route: 048
     Dates: start: 20231027
  2. AZACITIDINE [Concomitant]
     Active Substance: AZACITIDINE
     Indication: Acute myeloid leukaemia
     Dosage: 75 MG/M2
     Dates: start: 20231027

REACTIONS (12)
  - Sepsis [Unknown]
  - Bronchitis [Unknown]
  - White blood cell count decreased [Unknown]
  - Blood uric acid decreased [Unknown]
  - Upper respiratory tract infection [Unknown]
  - Thrombocytopenia [Recovered/Resolved]
  - Minimal residual disease [Unknown]
  - Urinary tract inflammation [Unknown]
  - Neutropenia [Not Recovered/Not Resolved]
  - Myelosuppression [Unknown]
  - Urinary tract infection [Unknown]
  - Anaemia [Unknown]

NARRATIVE: CASE EVENT DATE: 20230101
